FAERS Safety Report 7614127-4 (Version None)
Quarter: 2011Q3

REPORT INFORMATION
  Report Type: 
  Country: None (occurrence: None)
  Receive Date: 20110701
  Receipt Date: 20110328
  Transmission Date: 20111222
  Serious: Yes (Hospitalization)
  Sender: FDA-Public Use
  Company Number: 270035USA

PATIENT
  Sex: Female

DRUGS (1)
  1. ATENOLOL [Suspect]
     Indication: BLOOD PRESSURE
     Dosage: (25 MG)

REACTIONS (3)
  - VISION BLURRED [None]
  - HYPERTENSION [None]
  - BLOOD PRESSURE INADEQUATELY CONTROLLED [None]
